FAERS Safety Report 12630011 (Version 2)
Quarter: 2016Q3

REPORT INFORMATION
  Report Type: Spontaneous
  Country: IN (occurrence: IN)
  Receive Date: 20160808
  Receipt Date: 20160811
  Transmission Date: 20161109
  Serious: Yes (Hospitalization)
  Sender: FDA-Public Use
  Company Number: IN-JNJFOC-20160804130

PATIENT
  Age: 63 Year
  Sex: Female

DRUGS (7)
  1. ROSUVASTATIN. [Concomitant]
     Active Substance: ROSUVASTATIN
     Route: 065
  2. APIDRA [Concomitant]
     Active Substance: INSULIN GLULISINE
     Route: 065
  3. DETANTOL [Concomitant]
     Route: 065
  4. JANUMET [Concomitant]
     Active Substance: METFORMIN HYDROCHLORIDE\SITAGLIPTIN PHOSPHATE
     Route: 065
  5. CLOPILET A [Concomitant]
     Active Substance: ASPIRIN\CLOPIDOGREL BISULFATE
     Route: 065
  6. CANAGLIFLOZINE [Suspect]
     Active Substance: CANAGLIFLOZIN
     Indication: PRODUCT USED FOR UNKNOWN INDICATION
     Route: 065
  7. TRESIBA [Concomitant]
     Active Substance: INSULIN DEGLUDEC
     Route: 065

REACTIONS (2)
  - Diabetic ketoacidosis [Recovered/Resolved]
  - Pyrexia [Recovered/Resolved]

NARRATIVE: CASE EVENT DATE: 201607
